FAERS Safety Report 9559703 (Version 1)
Quarter: 2013Q3

REPORT INFORMATION
  Report Type: Spontaneous
  Country: US (occurrence: None)
  Receive Date: 20130906
  Receipt Date: 20130906
  Transmission Date: 20140515
  Serious: Yes (Hospitalization)
  Sender: FDA-Public Use
  Company Number: 163-POMAL-13072617

PATIENT
  Age: 68 Year
  Sex: Female

DRUGS (10)
  1. POMALYST [Suspect]
     Indication: PLASMA CELL MYELOMA
     Route: 048
     Dates: start: 201305, end: 201307
  2. GABAPENTIN [Concomitant]
  3. VALTREX (VALACICLOVIR HYDROCHLORIDE) [Concomitant]
  4. FENTANYL [Concomitant]
  5. OXYCODONE [Concomitant]
  6. ATIVAN (LORAZEPAM) [Concomitant]
  7. ERGOCALCIFEROL [Concomitant]
  8. CALCIUM [Concomitant]
  9. MIRALAX [Concomitant]
  10. ASA (ACETYLSALICYLIC ACID) [Concomitant]

REACTIONS (5)
  - Flank pain [None]
  - Plasmacytoma [None]
  - Plasma cell myeloma [None]
  - Pyrexia [None]
  - Platelet count decreased [None]
